FAERS Safety Report 23043183 (Version 2)
Quarter: 2024Q1

REPORT INFORMATION
  Report Type: Spontaneous
  Country: US (occurrence: US)
  Receive Date: 20231009
  Receipt Date: 20240104
  Transmission Date: 20240410
  Serious: Yes (Hospitalization)
  Sender: FDA-Public Use
  Company Number: US-BRISTOL-MYERS SQUIBB COMPANY-2023-141871

PATIENT
  Age: 77 Year
  Sex: Male

DRUGS (2)
  1. OPDIVO [Suspect]
     Active Substance: NIVOLUMAB
     Indication: Prostate cancer
     Dosage: FREQ : EVERY 3 WEEKS
     Route: 042
  2. YERVOY [Suspect]
     Active Substance: IPILIMUMAB
     Indication: Prostate cancer
     Dosage: FREQ : EVERY 3 WEEKS
     Route: 042

REACTIONS (2)
  - Fall [Unknown]
  - Off label use [Unknown]

NARRATIVE: CASE EVENT DATE: 20230915
